FAERS Safety Report 9725278 (Version 1)
Quarter: 2013Q4

REPORT INFORMATION
  Report Type: Spontaneous
  Country: US (occurrence: None)
  Receive Date: 20131202
  Receipt Date: 20131202
  Transmission Date: 20140711
  Serious: No
  Sender: FDA-Public Use
  Company Number: None

PATIENT
  Age: 33 Year
  Sex: Male
  Weight: 88.45 kg

DRUGS (1)
  1. STRATTERA 60 MG LILLY [Suspect]
     Indication: ATTENTION DEFICIT/HYPERACTIVITY DISORDER
     Dosage: 1 PILL ONCE DAILY TAKEN BY MOUTH
     Route: 048
     Dates: start: 20130401

REACTIONS (6)
  - Fatigue [None]
  - Somnolence [None]
  - Micturition disorder [None]
  - Pollakiuria [None]
  - Adrenal disorder [None]
  - Drug dose omission [None]
